FAERS Safety Report 6123670-9 (Version None)
Quarter: 2009Q1

REPORT INFORMATION
  Report Type: 
  Country: None (occurrence: None)
  Receive Date: 20090319
  Receipt Date: 20090313
  Transmission Date: 20090719
  Serious: Yes (Other)
  Sender: FDA-Public Use
  Company Number: TT-ASTRAZENECA-2009UW06648

PATIENT

DRUGS (1)
  1. ATACAND HCT [Suspect]
     Indication: HYPERTENSION
     Route: 048

REACTIONS (2)
  - SWOLLEN TONGUE [None]
  - VASCULAR GRAFT [None]
